FAERS Safety Report 6955683-9 (Version None)
Quarter: 2010Q3

REPORT INFORMATION
  Report Type: 
  Country: None (occurrence: None)
  Receive Date: 20100830
  Receipt Date: 20100823
  Transmission Date: 20110219
  Serious: Yes (Hospitalization)
  Sender: FDA-Public Use
  Company Number: AU-ROCHE-714887

PATIENT
  Sex: Male
  Weight: 73 kg

DRUGS (7)
  1. CAPECITABINE [Suspect]
     Indication: COLORECTAL CANCER
     Dosage: DAYS 1-14 OF 3 WEEK CYCLE.
     Route: 048
     Dates: start: 20100531
  2. CAPECITABINE [Suspect]
     Dosage: DAYS 1-14 OF 3 WEEK CYCLE.
     Route: 048
     Dates: start: 20100726
  3. BEVACIZUMAB [Suspect]
     Indication: COLORECTAL CANCER
     Route: 042
     Dates: start: 20100531
  4. BEVACIZUMAB [Suspect]
     Dosage: RECHALLENGE
     Route: 042
     Dates: start: 20100726
  5. RAMIPRIL [Concomitant]
     Indication: HYPERTENSION
     Route: 048
     Dates: start: 20100621
  6. ACETAMINOPHEN [Concomitant]
     Indication: PAIN
     Route: 048
     Dates: start: 20100711
  7. SIMBICORT [Concomitant]
     Indication: ASTHMA
     Dates: start: 20060101

REACTIONS (1)
  - ENTERITIS [None]
